FAERS Safety Report 4636957-3 (Version None)
Quarter: 2005Q2

REPORT INFORMATION
  Report Type: 
  Country: None (occurrence: None)
  Receive Date: 20050414
  Receipt Date: 20050329
  Transmission Date: 20051028
  Serious: No
  Sender: FDA-Public Use
  Company Number: 30700

PATIENT
  Age: 64 Year
  Sex: Male

DRUGS (6)
  1. TRAVATAN [Suspect]
     Indication: GLAUCOMA
     Dosage: OPHT
     Route: 047
  2. PROPRANOLOL [Concomitant]
  3. MIGRALGINE [Concomitant]
  4. TRIMETAZIDINE DIHYDROCHLORIDE [Concomitant]
  5. ACETYLSALICYLATE LYSINE [Concomitant]
  6. ATORVASTATINE [Concomitant]

REACTIONS (3)
  - APHASIA [None]
  - ARTERIAL THROMBOSIS [None]
  - SCOTOMA [None]
